FAERS Safety Report 26058765 (Version 1)
Quarter: 2025Q4

REPORT INFORMATION
  Report Type: Spontaneous
  Country: IN (occurrence: IN)
  Receive Date: 20251118
  Receipt Date: 20251118
  Transmission Date: 20260117
  Serious: Yes (Other)
  Sender: NOVARTIS
  Company Number: IN-002147023-NVSC2025IN175554

PATIENT
  Age: 29 Year
  Sex: Male

DRUGS (2)
  1. ASCIMINIB [Suspect]
     Active Substance: ASCIMINIB
     Indication: Chronic myeloid leukaemia transformation
     Dosage: 80 MG, QD
     Route: 048
  2. IMATINIB [Suspect]
     Active Substance: IMATINIB
     Indication: Chronic myeloid leukaemia transformation
     Dosage: 400 MG (1/2 TAB)
     Route: 048

REACTIONS (3)
  - Neuropathy peripheral [Unknown]
  - Therapeutic response decreased [Unknown]
  - Off label use [Unknown]
